FAERS Safety Report 5537715-8 (Version None)
Quarter: 2007Q4

REPORT INFORMATION
  Report Type: 
  Country: None (occurrence: None)
  Receive Date: 20071207
  Receipt Date: 20071127
  Transmission Date: 20080405
  Serious: Yes (Other)
  Sender: FDA-Public Use
  Company Number: JP-JNJFOC-20071007223

PATIENT
  Sex: Female
  Weight: 49 kg

DRUGS (16)
  1. DUROTEP [Suspect]
     Indication: CANCER PAIN
     Route: 062
  2. DUROTEP [Suspect]
     Indication: BACK PAIN
     Route: 062
  3. TOSUFLOXACIN TOSILATE [Interacting]
     Indication: BACTERIAL INFECTION
     Route: 065
  4. NAPROXEN [Interacting]
     Indication: BACK PAIN
     Route: 048
  5. DICLOFENAC SODIUM [Interacting]
     Indication: BACK PAIN
     Route: 054
  6. VINCRISTINE SULFATE [Concomitant]
     Indication: CHEMOTHERAPY
     Route: 041
  7. DOXORUBICIN HCL [Concomitant]
     Indication: CHEMOTHERAPY
     Route: 041
  8. DEXAMETHASONE ACETATE [Concomitant]
     Indication: CHEMOTHERAPY
     Route: 041
  9. FLUCONAZOLE [Concomitant]
     Indication: SYSTEMIC MYCOSIS
     Route: 048
  10. SULFAMETHOXAZOLE AND TRIMETHOPRIM [Concomitant]
     Indication: INFECTION PROPHYLAXIS
     Route: 065
  11. TIZANIDINE HCL [Concomitant]
     Indication: BACK PAIN
     Route: 048
  12. KAMAG G [Concomitant]
     Indication: CONSTIPATION
     Route: 048
  13. RABEPRAZOLE SODIUM [Concomitant]
     Indication: GASTRIC ULCER
     Route: 048
  14. CONSTAN [Concomitant]
     Indication: INSOMNIA
     Route: 048
  15. ZYLORIC [Concomitant]
     Indication: HYPERURICAEMIA
     Route: 048
  16. GLYSENNID [Concomitant]
     Indication: CONSTIPATION
     Route: 048

REACTIONS (2)
  - CONVULSION [None]
  - DRUG INTERACTION [None]
